FAERS Safety Report 10051819 (Version 3)
Quarter: 2014Q2

REPORT INFORMATION
  Report Type: Report from Study
  Country: CA (occurrence: CA)
  Receive Date: 20140402
  Receipt Date: 20140414
  Transmission Date: 20141212
  Serious: Yes (Other)
  Sender: FDA-Public Use
  Company Number: CA-ROCHE-1353624

PATIENT
  Age: 70 Year
  Sex: Female
  Weight: 88.9 kg

DRUGS (17)
  1. KADCYLA [Suspect]
     Indication: BREAST CANCER METASTATIC
     Route: 042
     Dates: start: 20140226
  2. HERCEPTIN [Suspect]
     Indication: PRODUCT USED FOR UNKNOWN INDICATION
     Route: 065
     Dates: start: 201206, end: 201210
  3. XELODA [Suspect]
     Indication: PRODUCT USED FOR UNKNOWN INDICATION
     Route: 065
     Dates: start: 201305, end: 20140204
  4. TAMOXIFEN [Suspect]
     Indication: PRODUCT USED FOR UNKNOWN INDICATION
     Route: 065
     Dates: start: 201301, end: 201305
  5. TAXOL [Suspect]
     Indication: PRODUCT USED FOR UNKNOWN INDICATION
     Route: 065
     Dates: start: 20120629, end: 20121221
  6. AROMASIN [Suspect]
     Indication: PRODUCT USED FOR UNKNOWN INDICATION
     Dosage: STOPPED BECAUSE MRI SHOWED IT WAS NOT WORKING
     Route: 065
     Dates: start: 201205, end: 201207
  7. FEMARA [Concomitant]
     Dosage: STOPPED BECAUSE IT WAS NOT WORKING
     Route: 065
     Dates: start: 201201, end: 201205
  8. PAMIDRONATE [Concomitant]
     Route: 065
     Dates: start: 201201
  9. TYKERB [Concomitant]
     Route: 065
     Dates: start: 201308, end: 20140204
  10. RAMIPRIL [Concomitant]
     Route: 065
     Dates: start: 201301
  11. BISOPROLOL [Concomitant]
     Route: 065
     Dates: start: 201301
  12. PRISTIQ [Concomitant]
     Route: 065
     Dates: start: 201201
  13. TRAZODONE [Concomitant]
     Route: 065
     Dates: start: 201201
  14. VITAMIN B12 [Concomitant]
  15. OMEGA FISH OIL [Concomitant]
  16. VITAMIN C [Concomitant]
  17. VITAMIN E [Concomitant]

REACTIONS (7)
  - Ejection fraction decreased [Recovering/Resolving]
  - Drug ineffective [Unknown]
  - Disease progression [Unknown]
  - Lacrimation increased [Unknown]
  - Rhinorrhoea [Unknown]
  - Headache [Unknown]
  - Asthenopia [Unknown]
